FAERS Safety Report 5771582-2 (Version None)
Quarter: 2008Q2

REPORT INFORMATION
  Report Type: 
  Country: None (occurrence: None)
  Receive Date: 20080611
  Receipt Date: 20080526
  Transmission Date: 20081010
  Serious: Yes (Other)
  Sender: FDA-Public Use
  Company Number: 8032575

PATIENT
  Age: 58 Year
  Sex: Male
  Weight: 76 kg

DRUGS (5)
  1. LEVETIRACETAM [Suspect]
     Dates: start: 20061001, end: 20080404
  2. CODEINE [Concomitant]
  3. COD LIVER OIL [Concomitant]
  4. FLUOXETINE [Concomitant]
  5. NASONEX [Concomitant]

REACTIONS (2)
  - GASTRITIS [None]
  - LARGE INTESTINAL HAEMORRHAGE [None]
